FAERS Safety Report 7399687-3 (Version None)
Quarter: 2011Q2

REPORT INFORMATION
  Report Type: 
  Country: None (occurrence: None)
  Receive Date: 20110407
  Receipt Date: 20110329
  Transmission Date: 20111010
  Serious: Yes (Hospitalization)
  Sender: FDA-Public Use
  Company Number: JP-ROCHE-729895

PATIENT
  Age: 58 Year
  Sex: Female
  Weight: 51 kg

DRUGS (3)
  1. REBETOL [Concomitant]
     Dosage: NOTE: DOSAGE IS UNCERTAIN.
     Route: 048
     Dates: start: 20070801, end: 20071201
  2. PEGASYS [Suspect]
     Indication: HEPATITIS C
     Dosage: NOTE: DOSAGE IS UNCERTAIN.
     Route: 058
     Dates: start: 20090116, end: 20090403
  3. INTRON A [Suspect]
     Indication: HEPATITIS C
     Dosage: NOTE: DOSAGE IS UNCERTAIN.
     Route: 065
     Dates: start: 20060801, end: 20071201

REACTIONS (3)
  - GLOMERULONEPHRITIS [None]
  - CASTLEMAN'S DISEASE [None]
  - IDIOPATHIC THROMBOCYTOPENIC PURPURA [None]
